FAERS Safety Report 17259893 (Version 2)
Quarter: 2020Q1

REPORT INFORMATION
  Report Type: Spontaneous
  Country: DE (occurrence: DE)
  Receive Date: 20200111
  Receipt Date: 20200204
  Transmission Date: 20200409
  Serious: Yes (Death, Other)
  Sender: FDA-Public Use
  Company Number: DE-TEVA-2020-DE-1165970

PATIENT
  Age: 60 Year
  Sex: Male

DRUGS (5)
  1. PEMBROLIZUMAB. [Suspect]
     Active Substance: PEMBROLIZUMAB
     Indication: METASTATIC NEOPLASM
     Dosage: 4 CYCLES, 1ST LINE THERAPY
     Dates: start: 20181017, end: 20181220
  2. DOCETAXEL. [Suspect]
     Active Substance: DOCETAXEL
     Indication: METASTATIC NEOPLASM
     Dosage: UNK
     Dates: start: 20190131, end: 20190404
  3. CISPLATIN. [Suspect]
     Active Substance: CISPLATIN
     Indication: METASTATIC NEOPLASM
     Dosage: 4 CYCLES, 1ST LINE THERAPY
     Dates: start: 20181017, end: 20181220
  4. PEMETREXED DISODIUM [Suspect]
     Active Substance: PEMETREXED DISODIUM
     Indication: METASTATIC NEOPLASM
     Dosage: 4 CYCLES, 1ST LINE THERAPY
     Dates: start: 20181017, end: 20181220
  5. NINTEDANIB [Suspect]
     Active Substance: NINTEDANIB
     Indication: METASTATIC NEOPLASM
     Dosage: UNK
     Dates: start: 20190131, end: 20190408

REACTIONS (2)
  - Death [Fatal]
  - Malignant neoplasm progression [Unknown]

NARRATIVE: CASE EVENT DATE: 2019
